FAERS Safety Report 4479271-1 (Version None)
Quarter: 2004Q4

REPORT INFORMATION
  Report Type: 
  Country: None (occurrence: None)
  Receive Date: 20041015
  Receipt Date: 20040927
  Transmission Date: 20050328
  Serious: Yes (Death)
  Sender: FDA-Public Use
  Company Number: 2004235962US

PATIENT
  Age: 27 Year
  Sex: 0

DRUGS (3)
  1. XANAX [Suspect]
  2. OXYCODONE (OXYCODONE) [Suspect]
  3. COCAINE (COCAINE) [Suspect]

REACTIONS (2)
  - CARDIO-RESPIRATORY ARREST [None]
  - INTENTIONAL MISUSE [None]
